FAERS Safety Report 7503396-7 (Version None)
Quarter: 2011Q2

REPORT INFORMATION
  Report Type: 
  Country: None (occurrence: None)
  Receive Date: 20110525
  Receipt Date: 20110518
  Transmission Date: 20111010
  Serious: Yes (Hospitalization, Other)
  Sender: FDA-Public Use
  Company Number: B0662466A

PATIENT
  Sex: Male
  Weight: 64 kg

DRUGS (4)
  1. MARAVIROC [Suspect]
     Indication: HIV INFECTION
     Dosage: 300MG TWICE PER DAY
     Route: 048
     Dates: start: 20050630
  2. ABACAVIR SULFATE AND LAMIVUDINE [Concomitant]
     Route: 048
     Dates: start: 20050630
  3. NORVIR [Concomitant]
     Route: 048
     Dates: start: 20050630
  4. TELZIR [Concomitant]
     Route: 048
     Dates: start: 20050630

REACTIONS (2)
  - BENIGN SALIVARY GLAND NEOPLASM [None]
  - METASTATIC NEOPLASM [None]
